FAERS Safety Report 5186326-5 (Version None)
Quarter: 2006Q4

REPORT INFORMATION
  Report Type: 
  Country: None (occurrence: None)
  Receive Date: 20061220
  Receipt Date: 20061116
  Transmission Date: 20070319
  Serious: Yes (Death, Hospitalization)
  Sender: FDA-Public Use
  Company Number: US-ELI_LILLY_AND_COMPANY-US200611003702

PATIENT
  Age: 74 Year
  Sex: Male
  Weight: 74.149 kg

DRUGS (4)
  1. ALIMTA [Suspect]
     Indication: LUNG CARCINOMA CELL TYPE UNSPECIFIED STAGE IV
     Dosage: 925 MG, UNK
     Route: 042
     Dates: start: 20061113
  2. VITAMIN B-12 [Concomitant]
     Dosage: 1000 UG, OTHER
     Route: 058
     Dates: start: 20061107
  3. FOLIC ACID [Concomitant]
     Dosage: 1 MG, DAILY (1/D)
     Route: 048
     Dates: start: 20061107
  4. DECADRON [Concomitant]
     Dosage: 10 MG, UNK
     Route: 042
     Dates: start: 20061113

REACTIONS (12)
  - ATRIAL FIBRILLATION [None]
  - BASE EXCESS [None]
  - BLOOD BICARBONATE INCREASED [None]
  - BLOOD CHLORIDE DECREASED [None]
  - BLOOD CREATININE DECREASED [None]
  - BLOOD GLUCOSE INCREASED [None]
  - COAGULATION TIME PROLONGED [None]
  - CONFUSIONAL STATE [None]
  - HAEMATOCRIT DECREASED [None]
  - HAEMOGLOBIN DECREASED [None]
  - PROTHROMBIN TIME PROLONGED [None]
  - RESPIRATORY FAILURE [None]
